FAERS Safety Report 6939280-7 (Version None)
Quarter: 2010Q3

REPORT INFORMATION
  Report Type: 
  Country: None (occurrence: None)
  Receive Date: 20100824
  Receipt Date: 20100816
  Transmission Date: 20110219
  Serious: Yes (Hospitalization)
  Sender: FDA-Public Use
  Company Number: CA-TYCO HEALTHCARE/MALLINCKRODT-T201001805

PATIENT
  Age: 45 Year
  Sex: Male

DRUGS (1)
  1. OPTIRAY 350 [Suspect]
     Dosage: 50 ML, SINGLE
     Route: 065

REACTIONS (3)
  - CHEST DISCOMFORT [None]
  - DYSPNOEA [None]
  - EYE PRURITUS [None]
